FAERS Safety Report 6314751-5 (Version None)
Quarter: 2009Q3

REPORT INFORMATION
  Report Type: 
  Country: None (occurrence: None)
  Receive Date: 20090817
  Receipt Date: 20090806
  Transmission Date: 20100115
  Serious: Yes (Hospitalization)
  Sender: FDA-Public Use
  Company Number: 230409K09CAN

PATIENT
  Sex: Female

DRUGS (6)
  1. REBIF [Suspect]
     Indication: MULTIPLE SCLEROSIS
     Dosage: 22 MCG, 3 IN 1 WEEKS
     Dates: start: 20071206, end: 20080830
  2. GABAPENTIN [Concomitant]
  3. LYRICA [Concomitant]
  4. SYNTHROID [Concomitant]
  5. EYESTILL (HYALURONATE SODIUM) (HYALURONATE SODIUM) [Concomitant]
  6. ALLERGY MEDICATION          (ALLERGY MEDICATION) [Concomitant]

REACTIONS (3)
  - INJECTION SITE REACTION [None]
  - TRIGEMINAL NERVE INJECTION [None]
  - TRIGEMINAL NEURALGIA [None]
